FAERS Safety Report 4954424-4 (Version None)
Quarter: 2006Q1

REPORT INFORMATION
  Report Type: 
  Country: None (occurrence: None)
  Receive Date: 20060322
  Receipt Date: 20060310
  Transmission Date: 20060701
  Serious: Yes (Life-Threatening)
  Sender: FDA-Public Use
  Company Number: TCI2006A01036

PATIENT
  Age: 71 Year
  Sex: Male

DRUGS (10)
  1. ACTOS [Suspect]
     Indication: DIABETES MELLITUS NON-INSULIN-DEPENDENT
     Dosage: 15 MG (15 MG, 1 IN 1 D) PER ORAL
     Route: 048
     Dates: start: 20051104, end: 20060303
  2. DILTIAZEM HCL [Suspect]
     Indication: HYPERTENSION
     Dosage: 90 MG (30 MG, 3 IN 1 D), PER ORAL
     Route: 048
     Dates: start: 19960427
  3. DILTIAZEM HCL [Suspect]
     Indication: MYOCARDIAL ISCHAEMIA
     Dosage: 90 MG (30 MG, 3 IN 1 D), PER ORAL
     Route: 048
     Dates: start: 19960427
  4. NICORANDIS (NICORANDIL) [Concomitant]
  5. ASPIRIN [Concomitant]
  6. ISOSORBIDE DINITRATE [Concomitant]
  7. ALLOPURINOL [Concomitant]
  8. GLYBURIDE [Concomitant]
  9. GLUCOBAY (ACARBOSE) [Concomitant]
  10. RANITAC (RANITIDINE HYDROCHLORIDE) [Concomitant]

REACTIONS (4)
  - ATRIOVENTRICULAR BLOCK COMPLETE [None]
  - ATRIOVENTRICULAR BLOCK SECOND DEGREE [None]
  - GLYCOSYLATED HAEMOGLOBIN INCREASED [None]
  - TREATMENT NONCOMPLIANCE [None]
